FAERS Safety Report 14134987 (Version 1)
Quarter: 2017Q4

REPORT INFORMATION
  Report Type: Spontaneous
  Country: US (occurrence: US)
  Receive Date: 20171027
  Receipt Date: 20171027
  Transmission Date: 20180321
  Serious: No
  Sender: FDA-Public Use
  Company Number: US-TEVA-726081ACC

PATIENT
  Sex: Male

DRUGS (1)
  1. CALCITRIOL. [Suspect]
     Active Substance: CALCITRIOL

REACTIONS (2)
  - Incorrect route of drug administration [Unknown]
  - Dysphagia [Unknown]
